FAERS Safety Report 19784160 (Version 2)
Quarter: 2021Q3

REPORT INFORMATION
  Report Type: Report from Study
  Country: CN (occurrence: CN)
  Receive Date: 20210903
  Receipt Date: 20210920
  Transmission Date: 20211014
  Serious: Yes (Hospitalization)
  Sender: FDA-Public Use
  Company Number: CN-ROCHE-2902043

PATIENT
  Age: 81 Year
  Sex: Male
  Weight: 73 kg

DRUGS (7)
  1. LAMIVUDINE;TENOFOVIR [Concomitant]
     Active Substance: LAMIVUDINE\TENOFOVIR
  2. HUAI ER KE LI [Concomitant]
  3. XL184 [Suspect]
     Active Substance: CABOZANTINIB
     Indication: HEPATOCELLULAR CARCINOMA
     Dosage: ON 20/AUG/2021, HE RECEIVED THE MOST RECENT DOSE OF CABOZANTINIB PRIOR TO THE EVENT ONSET.
     Route: 048
     Dates: start: 20210802
  4. TENOFOVIR DISOPROXIL FUMARATE. [Concomitant]
     Active Substance: TENOFOVIR DISOPROXIL FUMARATE
  5. ATEZOLIZUMAB. [Suspect]
     Active Substance: ATEZOLIZUMAB
     Indication: HEPATOCELLULAR CARCINOMA
     Dosage: ON SAME DAY, HE RECEIVED THE MOST RECENT DOSE OF ATEZOLIZUMAB PRIOR TO THE EVENT ONSET.
     Route: 042
     Dates: start: 20210802
  6. LEUCOGEN [Concomitant]
     Active Substance: LEUCOGEN
  7. SILYBIN MEGLUMINE [Concomitant]

REACTIONS (3)
  - Vomiting [Recovered/Resolved]
  - Diarrhoea [Recovered/Resolved]
  - Melaena [Recovered/Resolved]

NARRATIVE: CASE EVENT DATE: 20210819
